FAERS Safety Report 6121264-2 (Version None)
Quarter: 2009Q1

REPORT INFORMATION
  Report Type: 
  Country: None (occurrence: None)
  Receive Date: 20090312
  Receipt Date: 20090312
  Transmission Date: 20090719
  Serious: Yes (Other)
  Sender: FDA-Public Use
  Company Number: None

PATIENT

DRUGS (3)
  1. SEROQUEL [Suspect]
     Indication: AFFECTIVE DISORDER
     Dosage: 100 MG 1 TO 3 QHS PO
     Route: 048
  2. SEROQUEL [Suspect]
     Indication: INSOMNIA
     Dosage: 100 MG 1 TO 3 QHS PO
     Route: 048
  3. SEROQUEL [Suspect]
     Indication: NIGHTMARE
     Dosage: 100 MG 1 TO 3 QHS PO
     Route: 048

REACTIONS (3)
  - DYSPHONIA [None]
  - DYSTONIA [None]
  - WEIGHT INCREASED [None]
